FAERS Safety Report 17959169 (Version 1)
Quarter: 2020Q2

REPORT INFORMATION
  Report Type: Spontaneous
  Country: US (occurrence: US)
  Receive Date: 20200630
  Receipt Date: 20200630
  Transmission Date: 20200714
  Serious: No
  Sender: FDA-Public Use
  Company Number: US-TEVA-2020-US-1794088

PATIENT
  Sex: Female
  Weight: 88.98 kg

DRUGS (1)
  1. PENICILLIN [Suspect]
     Active Substance: PENICILLIN
     Route: 065

REACTIONS (2)
  - Drug hypersensitivity [Unknown]
  - Nausea [Unknown]
